FAERS Safety Report 13122912 (Version 1)
Quarter: 2017Q1

REPORT INFORMATION
  Report Type: Spontaneous
  Country: JP (occurrence: JP)
  Receive Date: 20170117
  Receipt Date: 20170117
  Transmission Date: 20170428
  Serious: Yes (Hospitalization, Other)
  Sender: FDA-Public Use
  Company Number: JP-PFIZER INC-2017017198

PATIENT
  Age: 58 Year
  Sex: Female

DRUGS (8)
  1. SPIRONOLACTONE. [Suspect]
     Active Substance: SPIRONOLACTONE
     Dosage: 50 MG, DAILY
  2. FUROSEMIDE. [Suspect]
     Active Substance: FUROSEMIDE
     Dosage: 40 MG, DAILY
  3. FUROSEMIDE. [Suspect]
     Active Substance: FUROSEMIDE
     Dosage: 20 MG, DAILY
  4. SILDENAFIL. [Concomitant]
     Active Substance: SILDENAFIL
     Indication: PORTOPULMONARY HYPERTENSION
     Dosage: 20 MG, 3X/DAY
  5. FUROSEMIDE. [Suspect]
     Active Substance: FUROSEMIDE
     Dosage: 10 MG, DAILY
  6. SPIRONOLACTONE. [Suspect]
     Active Substance: SPIRONOLACTONE
     Indication: PORTOPULMONARY HYPERTENSION
     Dosage: 100 MG, DAILY
  7. FUROSEMIDE. [Suspect]
     Active Substance: FUROSEMIDE
     Indication: PORTOPULMONARY HYPERTENSION
     Dosage: 80 MG, DAILY
     Route: 048
  8. AMBRISENTAN [Concomitant]
     Active Substance: AMBRISENTAN
     Indication: PORTOPULMONARY HYPERTENSION
     Dosage: 5 MG, 1X/DAY

REACTIONS (3)
  - Hypokalaemia [Recovered/Resolved]
  - Hyponatraemia [Recovered/Resolved]
  - Electrolyte imbalance [Recovered/Resolved]
